FAERS Safety Report 17278374 (Version 2)
Quarter: 2020Q1

REPORT INFORMATION
  Report Type: Report from Study
  Country: CA (occurrence: CA)
  Receive Date: 20200116
  Receipt Date: 20200317
  Transmission Date: 20200409
  Serious: Yes (Other)
  Sender: FDA-Public Use
  Company Number: CA-MYLANLABS-2020M1004912

PATIENT
  Sex: Female

DRUGS (3)
  1. CLOZAPINE. [Suspect]
     Active Substance: CLOZAPINE
     Indication: MANIA
     Dosage: UNK
     Dates: start: 20191211
  2. CLOZAPINE. [Suspect]
     Active Substance: CLOZAPINE
     Dosage: 6.25 MILLIGRAM, HS
  3. ATIVAN [Concomitant]
     Active Substance: LORAZEPAM
     Dosage: 3 MILLIGRAM, QD

REACTIONS (1)
  - Dystonia [Unknown]
